FAERS Safety Report 9651443 (Version 5)
Quarter: 2013Q4

REPORT INFORMATION
  Report Type: Report from Study
  Country: DE (occurrence: DE)
  Receive Date: 20131029
  Receipt Date: 20131205
  Transmission Date: 20140711
  Serious: Yes (Hospitalization, Other)
  Sender: FDA-Public Use
  Company Number: DE-UCBSA-049491

PATIENT
  Age: 78 Year
  Sex: Male
  Weight: 82 kg

DRUGS (18)
  1. NEUPRO [Suspect]
     Indication: RESTLESS LEGS SYNDROME
     Route: 062
     Dates: start: 20111017, end: 201112
  2. NEUPRO [Suspect]
     Indication: RESTLESS LEGS SYNDROME
     Route: 062
     Dates: start: 20111015, end: 20111016
  3. NEUPRO [Suspect]
     Indication: RESTLESS LEGS SYNDROME
     Route: 062
     Dates: start: 20111014, end: 20111014
  4. NEUPRO [Suspect]
     Indication: RESTLESS LEGS SYNDROME
     Route: 062
     Dates: start: 20111012, end: 20111013
  5. NEUPRO [Suspect]
     Indication: RESTLESS LEGS SYNDROME
     Route: 062
     Dates: start: 20110817, end: 20111011
  6. NEUPRO [Suspect]
     Indication: RESTLESS LEGS SYNDROME
     Route: 062
     Dates: start: 20110721, end: 20110816
  7. VALORON [Concomitant]
     Indication: RESTLESS LEGS SYNDROME
     Dosage: 12 DROPS, 3 TIMES DAILY
     Route: 048
     Dates: start: 19990101
  8. VIGIL [Concomitant]
     Indication: RESTLESS LEGS SYNDROME
     Route: 048
     Dates: start: 20100701
  9. ZOLOFT [Concomitant]
     Indication: DEPRESSED MOOD
     Route: 048
     Dates: start: 20110101
  10. NEBILET [Concomitant]
     Indication: HYPERTENSION
     Route: 048
     Dates: start: 19960101
  11. DELIX 5 [Concomitant]
     Indication: HYPERTENSION
     Route: 048
     Dates: start: 19960101
  12. ISCOVER 75 [Concomitant]
     Indication: HYPERTENSION
     Route: 048
     Dates: start: 20040101
  13. VALORON RETARD [Concomitant]
     Indication: RESTLESS LEGS SYNDROME
     Dosage: TOTAL DAILY DOSE: 50/4MG
     Route: 048
     Dates: start: 20090319, end: 20110817
  14. VALORON RETARD [Concomitant]
     Indication: RESTLESS LEGS SYNDROME
     Dosage: DAILY DOSE-50/4 MG
     Route: 048
     Dates: start: 20111017
  15. CORTISONE [Concomitant]
     Indication: RESPIRATORY FAILURE
     Route: 055
     Dates: start: 20111201, end: 20120101
  16. CORTISONE [Concomitant]
     Indication: PULMONARY FIBROSIS
     Route: 055
     Dates: start: 20111201, end: 20120101
  17. ANALGESICS [Concomitant]
  18. RIFUN [Concomitant]
     Indication: GASTRITIS
     Dosage: UNKNOWN DOSE
     Route: 048
     Dates: start: 20060101

REACTIONS (11)
  - Respiratory failure [Recovered/Resolved]
  - Pulmonary fibrosis [Recovered/Resolved]
  - Pneumonia [Recovered/Resolved]
  - Gastrointestinal haemorrhage [Recovered/Resolved]
  - Urinary tract infection [Recovered/Resolved]
  - Hypokalaemia [Recovered/Resolved]
  - Diverticulum [Unknown]
  - Hiatus hernia [Unknown]
  - Acquired oesophageal web [Unknown]
  - Peripheral artery thrombosis [Unknown]
  - Nausea [Recovered/Resolved]
